FAERS Safety Report 13428438 (Version 7)
Quarter: 2017Q4

REPORT INFORMATION
  Report Type: Spontaneous
  Country: JP (occurrence: JP)
  Receive Date: 20170411
  Receipt Date: 20171110
  Transmission Date: 20180320
  Serious: Yes (Other)
  Sender: FDA-Public Use
  Company Number: JP-JNJFOC-20170104256

PATIENT
  Age: 69 Year
  Sex: Female

DRUGS (3)
  1. XEPLION [Suspect]
     Active Substance: PALIPERIDONE PALMITATE
     Indication: SCHIZOPHRENIA
     Route: 030
     Dates: start: 20170414, end: 20170414
  2. XEPLION [Suspect]
     Active Substance: PALIPERIDONE PALMITATE
     Indication: SCHIZOPHRENIA
     Route: 030
  3. XEPLION [Suspect]
     Active Substance: PALIPERIDONE PALMITATE
     Indication: SCHIZOPHRENIA
     Route: 030

REACTIONS (10)
  - Feeling abnormal [Unknown]
  - Renal hypertrophy [Unknown]
  - Hepatic hypertrophy [Unknown]
  - Pulmonary pain [Unknown]
  - Cardiac hypertrophy [Unknown]
  - Angina pectoris [Unknown]
  - Pulse abnormal [Unknown]
  - Headache [Unknown]
  - Injection site pain [Not Recovered/Not Resolved]
  - Abdominal distension [Unknown]

NARRATIVE: CASE EVENT DATE: 20170130
